FAERS Safety Report 11253770 (Version 2)
Quarter: 2015Q3

REPORT INFORMATION
  Report Type: Spontaneous
  Country: BR (occurrence: BR)
  Receive Date: 20150709
  Receipt Date: 20150819
  Transmission Date: 20151125
  Serious: Yes (Other)
  Sender: FDA-Public Use
  Company Number: PHHY2015BR081830

PATIENT
  Age: 4 Year
  Sex: Male
  Weight: 21 kg

DRUGS (3)
  1. TRILEPTAL [Suspect]
     Active Substance: OXCARBAZEPINE
     Indication: POOR QUALITY SLEEP
  2. TRILEPTAL [Suspect]
     Active Substance: OXCARBAZEPINE
     Indication: SLEEP TALKING
  3. TRILEPTAL [Suspect]
     Active Substance: OXCARBAZEPINE
     Indication: SLEEP DISORDER
     Dosage: 4 ML, BID (IN THE MORNING AND IN THE AFTERNOON)
     Route: 048

REACTIONS (4)
  - Off label use [Unknown]
  - Drug ineffective [Unknown]
  - Electroencephalogram abnormal [Unknown]
  - Agitation [Unknown]

NARRATIVE: CASE EVENT DATE: 20150521
